FAERS Safety Report 9119886 (Version 1)
Quarter: 2013Q1

REPORT INFORMATION
  Report Type: Spontaneous
  Country: US (occurrence: US)
  Receive Date: 20130226
  Receipt Date: 20130226
  Transmission Date: 20140127
  Serious: Yes (Other)
  Sender: FDA-Public Use
  Company Number: US-BAYER-2013-021646

PATIENT
  Age: 67 Year
  Sex: Male

DRUGS (1)
  1. STIVARGA [Suspect]
     Indication: COLORECTAL CANCER
     Dosage: 160 MG, 4 TABLETS DAILY
     Dates: start: 20130215

REACTIONS (4)
  - Blood pressure increased [None]
  - Lung disorder [None]
  - Pyrexia [None]
  - Headache [None]
